FAERS Safety Report 13900577 (Version 1)
Quarter: 2017Q3

REPORT INFORMATION
  Report Type: Spontaneous
  Country: US (occurrence: None)
  Receive Date: 20170818
  Receipt Date: 20170818
  Transmission Date: 20171127
  Serious: Yes (Hospitalization)
  Sender: FDA-Public Use
  Company Number: None

PATIENT
  Age: 83 Year
  Sex: Male
  Weight: 60 kg

DRUGS (2)
  1. NIVOLUMAB [Suspect]
     Active Substance: NIVOLUMAB
     Indication: MALIGNANT MELANOMA
     Route: 042
     Dates: start: 20170228, end: 20170731
  2. IPILUMUMAB 1MG/KG [Suspect]
     Active Substance: IPILIMUMAB
     Indication: MALIGNANT MELANOMA
     Route: 042
     Dates: start: 20170228, end: 20170703

REACTIONS (6)
  - Weight decreased [None]
  - Latent autoimmune diabetes in adults [None]
  - Decreased appetite [None]
  - Acute kidney injury [None]
  - Endocrine disorder [None]
  - Dry mouth [None]

NARRATIVE: CASE EVENT DATE: 20170816
